FAERS Safety Report 8117153 (Version 10)
Quarter: 2013Q4

REPORT INFORMATION
  Report Type: Spontaneous
  Country: US (occurrence: US)
  Receive Date: 20110901
  Receipt Date: 20131016
  Transmission Date: 20140711
  Serious: Yes (Hospitalization, Other)
  Sender: FDA-Public Use
  Company Number: US-ROCHE-798733

PATIENT
  Age: 29 Year
  Sex: Male
  Weight: 77.18 kg

DRUGS (7)
  1. ACCUTANE [Suspect]
     Indication: ACNE
     Route: 048
  2. ACCUTANE [Suspect]
     Route: 065
     Dates: start: 19950506, end: 199508
  3. ACCUTANE [Suspect]
     Route: 048
     Dates: start: 19950825, end: 19951001
  4. AMOXIL [Concomitant]
  5. DICYCLOMINE [Concomitant]
  6. PEPCID [Concomitant]
  7. PREVACID [Concomitant]

REACTIONS (10)
  - Depression [Not Recovered/Not Resolved]
  - Injury [Unknown]
  - Inflammatory bowel disease [Unknown]
  - Intestinal haemorrhage [Unknown]
  - Anal fissure [Unknown]
  - Polyp [Unknown]
  - Anal fistula [Unknown]
  - Osteoporosis [Unknown]
  - Crohn^s disease [Unknown]
  - Intestinal obstruction [Unknown]
